FAERS Safety Report 8349432-X (Version None)
Quarter: 2012Q2

REPORT INFORMATION
  Report Type: 
  Country: None (occurrence: None)
  Receive Date: 20120510
  Receipt Date: 20120502
  Transmission Date: 20120825
  Serious: Yes (Other)
  Sender: FDA-Public Use
  Company Number: BR-PFIZER INC-2012111880

PATIENT
  Sex: Female

DRUGS (4)
  1. MANIVASC [Concomitant]
     Indication: HYPERTENSION
     Dosage: UNK
     Dates: start: 20000101
  2. CLONIDINE HYDROCHLORIDE [Concomitant]
     Indication: HYPERTENSION
     Dosage: UNK
     Dates: start: 20000101
  3. FELDENE [Suspect]
     Dosage: UNK
     Route: 048
     Dates: start: 20100101
  4. ATACAND [Concomitant]
     Indication: HYPERTENSION
     Dosage: 8 MG, UNK
     Dates: start: 20000101

REACTIONS (1)
  - UPPER LIMB FRACTURE [None]
